FAERS Safety Report 6189450-3 (Version None)
Quarter: 2009Q2

REPORT INFORMATION
  Report Type: 
  Country: None (occurrence: None)
  Receive Date: 20090514
  Receipt Date: 20090430
  Transmission Date: 20091009
  Serious: Yes (Hospitalization)
  Sender: FDA-Public Use
  Company Number: FR-EISAI INC.-E3810-02813-SPO-FR

PATIENT
  Sex: Female

DRUGS (2)
  1. PARIET (RABEPRAZOLE) [Suspect]
     Route: 048
  2. TRAMADOL [Concomitant]

REACTIONS (3)
  - ILEUS PARALYTIC [None]
  - SELF-MEDICATION [None]
  - WEIGHT DECREASED [None]
